FAERS Safety Report 9714736 (Version 3)
Quarter: 2014Q1

REPORT INFORMATION
  Report Type: Spontaneous
  Country: US (occurrence: US)
  Receive Date: 20131126
  Receipt Date: 20140204
  Transmission Date: 20141002
  Serious: Yes (Hospitalization)
  Sender: FDA-Public Use
  Company Number: US-B.I. PHARMACEUTICALS,INC./RIDGEFIELD-2013-BI-38591BP

PATIENT
  Age: 49 Year
  Sex: Male
  Weight: 153 kg

DRUGS (6)
  1. COMBIVENT [Suspect]
     Indication: CHRONIC OBSTRUCTIVE PULMONARY DISEASE
     Route: 055
     Dates: start: 200909, end: 201306
  2. COMBIVENT [Suspect]
     Indication: PRODUCT USED FOR UNKNOWN INDICATION
     Dates: start: 201306, end: 201308
  3. AMLODIPINE [Concomitant]
     Indication: HYPERTENSION
     Route: 048
  4. DEPAKOTE [Concomitant]
     Indication: BIPOLAR DISORDER
     Route: 048
  5. LISINOPRIL [Concomitant]
     Indication: HYPERTENSION
     Route: 048
  6. LORAZEPAM [Concomitant]
     Indication: ANXIETY
     Route: 048

REACTIONS (1)
  - Depression [Recovered/Resolved]
